FAERS Safety Report 22329534 (Version 1)
Quarter: 2023Q2

REPORT INFORMATION
  Report Type: Spontaneous
  Country: CA (occurrence: CA)
  Receive Date: 20230517
  Receipt Date: 20230517
  Transmission Date: 20230722
  Serious: Yes (Hospitalization, Other)
  Sender: FDA-Public Use
  Company Number: CA-ABBVIE-4767465

PATIENT
  Sex: Male

DRUGS (1)
  1. HUMIRA [Suspect]
     Active Substance: ADALIMUMAB
     Indication: Rheumatoid arthritis
     Route: 058

REACTIONS (7)
  - Arthralgia [Unknown]
  - Asthenia [Unknown]
  - Cough [Unknown]
  - Weight decreased [Unknown]
  - Pneumonia [Unknown]
  - Body temperature increased [Unknown]
  - Oedema peripheral [Unknown]
